FAERS Safety Report 5917813-7 (Version None)
Quarter: 2008Q4

REPORT INFORMATION
  Report Type: 
  Country: None (occurrence: None)
  Receive Date: 20081014
  Receipt Date: 20020717
  Transmission Date: 20090506
  Serious: No
  Sender: FDA-Public Use
  Company Number: US-ABBOTT-08P-163-0450671-00

PATIENT

DRUGS (4)
  1. KALETRA [Suspect]
     Indication: DRUG USE FOR UNKNOWN INDICATION
  2. RITONAVIR [Concomitant]
     Indication: DRUG USE FOR UNKNOWN INDICATION
  3. INDINIVIR SULFATE [Concomitant]
     Indication: DRUG USE FOR UNKNOWN INDICATION
  4. LAMIVUDINE + ZIDOVUDINE [Concomitant]
     Indication: DRUG USE FOR UNKNOWN INDICATION

REACTIONS (3)
  - BODY FAT DISORDER [None]
  - DIARRHOEA [None]
  - HYPOAESTHESIA [None]
